FAERS Safety Report 8981626 (Version 2)
Quarter: 2013Q1

REPORT INFORMATION
  Report Type: Spontaneous
  Country: DE (occurrence: DE)
  Receive Date: 20121223
  Receipt Date: 20130305
  Transmission Date: 20140127
  Serious: Yes (Other)
  Sender: FDA-Public Use
  Company Number: DE-JNJFOC-20120908562

PATIENT
  Age: 79 None
  Sex: Male
  Weight: 84 kg

DRUGS (9)
  1. XARELTO [Suspect]
     Indication: ATRIAL FIBRILLATION
     Route: 048
     Dates: start: 20120515
  2. XARELTO [Suspect]
     Indication: ATRIAL FIBRILLATION
     Route: 048
     Dates: start: 20120319, end: 20120514
  3. DIGIMERCK [Concomitant]
     Route: 048
  4. TORASEMID [Concomitant]
     Route: 048
  5. METOPROLOL [Concomitant]
     Route: 048
  6. RAMIPRIL [Concomitant]
     Route: 048
  7. TAMSULOSIN HYDROCHLORIDE [Concomitant]
     Route: 048
  8. FEBUXOSTAT [Concomitant]
     Route: 048
  9. INDOMETACIN [Concomitant]
     Route: 048

REACTIONS (2)
  - Lower gastrointestinal haemorrhage [Recovering/Resolving]
  - Gout [Recovering/Resolving]
